FAERS Safety Report 25196234 (Version 3)
Quarter: 2025Q4

REPORT INFORMATION
  Report Type: Report from Study
  Country: US (occurrence: US)
  Receive Date: 20250415
  Receipt Date: 20251007
  Transmission Date: 20260117
  Serious: Yes (Other)
  Sender: TAKEDA
  Company Number: US-TAKEDA-2022TUS086835

PATIENT
  Sex: Female
  Weight: 78 kg

DRUGS (22)
  1. HUMAN IMMUNOGLOBULIN G [Suspect]
     Active Substance: HUMAN IMMUNOGLOBULIN G
     Indication: Immune system disorder
     Dosage: 24 GRAM, Q2WEEKS
  2. HUMAN IMMUNOGLOBULIN G [Suspect]
     Active Substance: HUMAN IMMUNOGLOBULIN G
     Indication: Hypergammaglobulinaemia
  3. REPATHA [Suspect]
     Active Substance: EVOLOCUMAB
     Indication: Product used for unknown indication
     Dosage: UNK
  4. ACETAMINOPHEN [Concomitant]
     Active Substance: ACETAMINOPHEN
     Dosage: UNK
  5. BEANO [Concomitant]
     Active Substance: ASPERGILLUS NIGER .ALPHA.-GALACTOSIDASE
     Dosage: UNK
  6. ZYRTEC [Concomitant]
     Active Substance: CETIRIZINE HYDROCHLORIDE
     Dosage: UNK
  7. LIVALO [Concomitant]
     Active Substance: PITAVASTATIN CALCIUM
     Dosage: UNK
  8. TYLENOL [Concomitant]
     Active Substance: ACETAMINOPHEN
     Dosage: UNK
  9. CYANOCOBALAMIN [Concomitant]
     Active Substance: CYANOCOBALAMIN
     Dosage: UNK
  10. VITAMIN D3 [Concomitant]
     Active Substance: CHOLECALCIFEROL
     Dosage: UNK
  11. GABAPENTIN [Concomitant]
     Active Substance: GABAPENTIN
     Dosage: UNK
  12. FISH OIL [Concomitant]
     Active Substance: FISH OIL
     Dosage: UNK
  13. LIDOCAINE [Concomitant]
     Active Substance: LIDOCAINE
     Dosage: UNK
  14. BRIVIACT [Concomitant]
     Active Substance: BRIVARACETAM
     Dosage: UNK
  15. FAMOTIDINE [Concomitant]
     Active Substance: FAMOTIDINE
     Dosage: UNK
  16. LISINOPRIL [Concomitant]
     Active Substance: LISINOPRIL
     Dosage: UNK
  17. DIPHENHYDRAMINE HYDROCHLORIDE [Concomitant]
     Active Substance: DIPHENHYDRAMINE HYDROCHLORIDE
     Dosage: UNK
  18. OMEPRAZOLE [Concomitant]
     Active Substance: OMEPRAZOLE
     Dosage: UNK
  19. ONDANSETRON HYDROCHLORIDE [Concomitant]
     Active Substance: ONDANSETRON HYDROCHLORIDE
     Dosage: UNK
  20. LORATADINE [Concomitant]
     Active Substance: LORATADINE
     Dosage: UNK
  21. EPINEPHRINE [Concomitant]
     Active Substance: EPINEPHRINE
     Dosage: UNK
  22. Lmx [Concomitant]
     Dosage: UNK

REACTIONS (32)
  - Autoimmune disorder [Unknown]
  - Ear infection [Unknown]
  - Seasonal allergy [Unknown]
  - Dysphagia [Unknown]
  - Gastrointestinal disorder [Unknown]
  - Urinary tract infection [Unknown]
  - Infusion site discharge [Unknown]
  - Oesophageal spasm [Unknown]
  - Gastroenteritis viral [Unknown]
  - Nasopharyngitis [Unknown]
  - Injection site discharge [Unknown]
  - Spondylitis [Unknown]
  - Gastrooesophageal reflux disease [Unknown]
  - Inflammation [Unknown]
  - Arthritis [Unknown]
  - Arthropod sting [Unknown]
  - Multiple allergies [Unknown]
  - Oral herpes [Unknown]
  - Upper respiratory tract infection [Unknown]
  - Sinusitis [Unknown]
  - Stomatitis [Unknown]
  - Oropharyngeal pain [Unknown]
  - Infusion site reaction [Unknown]
  - Pain in extremity [Unknown]
  - Infusion site swelling [Unknown]
  - Infusion site erythema [Unknown]
  - Infusion site pruritus [Unknown]
  - Chest discomfort [Unknown]
  - Back pain [Unknown]
  - Arthralgia [Unknown]
  - Pruritus [Unknown]
  - Headache [Unknown]

NARRATIVE: CASE EVENT DATE: 20241207
